FAERS Safety Report 10901556 (Version 1)
Quarter: 2015Q1

REPORT INFORMATION
  Report Type: Spontaneous
  Country: US (occurrence: None)
  Receive Date: 20150303
  Receipt Date: 20150303
  Transmission Date: 20150721
  Serious: Yes (Hospitalization, Disabling)
  Sender: FDA-Public Use
  Company Number: None

PATIENT
  Age: 34 Year
  Sex: Female
  Weight: 72.12 kg

DRUGS (3)
  1. VITAMIN [Concomitant]
     Active Substance: VITAMINS
  2. XANAX [Concomitant]
     Active Substance: ALPRAZOLAM
  3. OXYELITE PRO [Suspect]
     Active Substance: DIETARY SUPPLEMENT
     Indication: WEIGHT DECREASED
     Dosage: 1-2 PILLS QD QD 1 A DAY
     Dates: start: 201303, end: 201308

REACTIONS (3)
  - Palpitations [None]
  - Heart valve incompetence [None]
  - Urinary incontinence [None]

NARRATIVE: CASE EVENT DATE: 201401
